FAERS Safety Report 8396392-1 (Version None)
Quarter: 2012Q1

REPORT INFORMATION
  Report Type: 
  Country: None (occurrence: None)
  Receive Date: 20120323
  Receipt Date: 20111114
  Transmission Date: 20120608
  Serious: Yes (Hospitalization)
  Sender: FDA-Public Use
  Company Number: 163-21880-11073031

PATIENT
  Age: 66 Year
  Sex: Female
  Weight: 62.5964 kg

DRUGS (13)
  1. COUMADIN [Concomitant]
  2. CARDIZEM [Concomitant]
  3. REVLIMID [Suspect]
     Indication: MYELODYSPLASTIC SYNDROME
     Dosage: 5 MG, 1 IN 1 D, PO
     Route: 048
     Dates: start: 20100701, end: 20110701
  4. ZOSYN (PIP/TAZO) (INJECTION) [Concomitant]
  5. NORVASC [Concomitant]
  6. ACETAMINOPHEN [Concomitant]
  7. CLARITIN [Concomitant]
  8. VANCOMYCIN [Concomitant]
  9. METOPROLOL TARTRATE [Concomitant]
  10. ALLOPURINOL [Concomitant]
  11. DILTIAZEM [Concomitant]
  12. PROCRIT [Concomitant]
  13. LOPRESSOR [Concomitant]

REACTIONS (3)
  - VIRAL INFECTION [None]
  - CARDIAC FAILURE CONGESTIVE [None]
  - FULL BLOOD COUNT DECREASED [None]
